FAERS Safety Report 7894323-1 (Version None)
Quarter: 2011Q4

REPORT INFORMATION
  Report Type: 
  Country: None (occurrence: None)
  Receive Date: 20111104
  Receipt Date: 20111027
  Transmission Date: 20120403
  Serious: Yes (Hospitalization)
  Sender: FDA-Public Use
  Company Number: US-MERCK-1108USA03118

PATIENT
  Age: 66 Year
  Sex: Female
  Weight: 62 kg

DRUGS (15)
  1. ESTRACE [Concomitant]
     Indication: POSTMENOPAUSE
     Route: 048
  2. VITAMIN E [Concomitant]
     Route: 065
  3. FOSAMAX [Suspect]
     Indication: OSTEOPENIA
     Route: 048
     Dates: start: 19970909, end: 20060701
  4. PROVERA [Concomitant]
     Indication: MENOPAUSE
     Route: 048
  5. MIACALCIN [Concomitant]
     Route: 065
  6. FOSAMAX PLUS D [Suspect]
     Indication: OSTEOPENIA
     Route: 048
     Dates: start: 20060706, end: 20061201
  7. ASCORBIC ACID [Concomitant]
     Route: 065
  8. CALCIUM (UNSPECIFIED) [Concomitant]
     Route: 065
  9. BONIVA [Suspect]
     Indication: OSTEOPENIA
     Route: 048
     Dates: start: 20070119, end: 20091204
  10. PYRIDOXINE [Concomitant]
     Route: 065
  11. VITAMIN D (UNSPECIFIED) [Concomitant]
     Route: 065
  12. SYNTHROID [Concomitant]
     Indication: HYPOTHYROIDISM
     Route: 065
  13. CHLOR-TRIMETON [Concomitant]
     Indication: SEASONAL ALLERGY
     Route: 048
  14. ONE-A-DAY ESSENTIAL VITAMINS [Concomitant]
     Route: 065
  15. HYZAAR [Concomitant]
     Route: 065

REACTIONS (10)
  - WRIST FRACTURE [None]
  - TACHYCARDIA [None]
  - HYPERTENSION [None]
  - ARTHRALGIA [None]
  - ELECTROCARDIOGRAM ST-T CHANGE [None]
  - FIBULA FRACTURE [None]
  - MUSCLE STRAIN [None]
  - FEMUR FRACTURE [None]
  - FALL [None]
  - TENDON DISORDER [None]
